FAERS Safety Report 8571921-3 (Version None)
Quarter: 2012Q2

REPORT INFORMATION
  Report Type: 
  Country: None (occurrence: None)
  Receive Date: 20120418
  Receipt Date: 20100208
  Transmission Date: 20120825
  Serious: Yes (Other)
  Sender: FDA-Public Use
  Company Number: PHEH2010US02345

PATIENT
  Sex: Male

DRUGS (5)
  1. ATENOLOL [Concomitant]
  2. CRESTOR [Concomitant]
  3. PLAVIX [Concomitant]
  4. DIOVAN HCT [Suspect]
     Dosage: 160/12.5MG, 3-4 YEARS, ORAL
     Route: 048
  5. NAMENDA [Concomitant]

REACTIONS (1)
  - CONFUSIONAL STATE [None]
